FAERS Safety Report 4705878-X (Version None)
Quarter: 2005Q2

REPORT INFORMATION
  Report Type: 
  Country: None (occurrence: None)
  Receive Date: 20050629
  Receipt Date: 20050413
  Transmission Date: 20051028
  Serious: Yes (Hospitalization)
  Sender: FDA-Public Use
  Company Number: 05P-163-0297209-00

PATIENT
  Age: 70 Year
  Sex: Male
  Weight: 66.2252 kg

DRUGS (7)
  1. HUMIRA [Suspect]
     Indication: RHEUMATOID ARTHRITIS
     Dosage: 40 MG, 1 IN 2 WK, SUBCUTANEOUS
     Route: 058
     Dates: start: 20040601
  2. PREDNISONE TAB [Concomitant]
  3. METHOTREXATE SODIUM [Concomitant]
  4. FOLIC ACID [Concomitant]
  5. AMLODIPINE BESILATE [Concomitant]
  6. DIOVAN [Concomitant]
  7. PARACETAMOL [Concomitant]

REACTIONS (2)
  - BLOOD URINE PRESENT [None]
  - RENAL CELL CARCINOMA STAGE UNSPECIFIED [None]
